FAERS Safety Report 19803616 (Version 1)
Quarter: 2021Q3

REPORT INFORMATION
  Report Type: Report from Study
  Country: US (occurrence: US)
  Receive Date: 20210908
  Receipt Date: 20210908
  Transmission Date: 20211014
  Serious: Yes (Hospitalization)
  Sender: FDA-Public Use
  Company Number: US-JNJFOC-A-US2019-197977

PATIENT
  Age: 54 Year
  Sex: Male
  Weight: 151.02 kg

DRUGS (6)
  1. UPTRAVI [Suspect]
     Active Substance: SELEXIPAG
     Indication: HERITABLE PULMONARY ARTERIAL HYPERTENSION
     Dosage: 800 MCG, BID
     Route: 048
     Dates: end: 201911
  2. VELETRI [Suspect]
     Active Substance: EPOPROSTENOL
     Indication: HERITABLE PULMONARY ARTERIAL HYPERTENSION
     Dosage: 6 NG/KG, PER MIN
     Route: 042
     Dates: start: 20191121
  3. VELETRI [Suspect]
     Active Substance: EPOPROSTENOL
     Dosage: 8 NG/KG, PER MIN
     Route: 042
     Dates: start: 201911
  4. OPSUMIT [Suspect]
     Active Substance: MACITENTAN
     Indication: HERITABLE PULMONARY ARTERIAL HYPERTENSION
     Dosage: 10 MG, QD
     Route: 048
     Dates: start: 2019
  5. CHLORHEXIDINE [Concomitant]
     Active Substance: CHLORHEXIDINE
     Route: 061
  6. SILDENAFIL CITRATE. [Concomitant]
     Active Substance: SILDENAFIL CITRATE

REACTIONS (9)
  - Drug ineffective [Unknown]
  - Pain in jaw [Unknown]
  - Rash [Unknown]
  - Headache [Unknown]
  - Product dose omission issue [Recovered/Resolved]
  - Flushing [Unknown]
  - Therapy change [Recovered/Resolved]
  - Dermatitis allergic [Unknown]
  - Catheter site irritation [Unknown]

NARRATIVE: CASE EVENT DATE: 20191121
